FAERS Safety Report 4922788-3 (Version None)
Quarter: 2006Q1

REPORT INFORMATION
  Report Type: 
  Country: None (occurrence: None)
  Receive Date: 20060221
  Receipt Date: 20051111
  Transmission Date: 20060701
  Serious: Yes (Hospitalization)
  Sender: FDA-Public Use
  Company Number: GBWYE139015NOV05

PATIENT
  Age: 47 Year
  Sex: Male

DRUGS (2)
  1. ACETAMINOPHEN [Suspect]
     Dosage: 7.5 G SINGLE, ORAL
     Route: 048
     Dates: start: 20051002, end: 20051002
  2. IBUPROFEN [Suspect]
     Dosage: 28 G SINGLE, ORAL
     Route: 048
     Dates: start: 20051002, end: 20051002

REACTIONS (9)
  - ABDOMINAL PAIN [None]
  - BLOOD POTASSIUM DECREASED [None]
  - DIZZINESS [None]
  - GASTROINTESTINAL HAEMORRHAGE [None]
  - HAEMATEMESIS [None]
  - HAEMOGLOBIN DECREASED [None]
  - OVERDOSE [None]
  - PAIN [None]
  - RECTAL HAEMORRHAGE [None]
